FAERS Safety Report 5590470-8 (Version None)
Quarter: 2008Q1

REPORT INFORMATION
  Report Type: 
  Country: None (occurrence: None)
  Receive Date: 20080114
  Receipt Date: 20071218
  Transmission Date: 20080703
  Serious: No
  Sender: FDA-Public Use
  Company Number: US-BOEHRINGER INGELHEIM PHARMACEUTICALS, INC.-2007-BP-26428BP

PATIENT
  Age: 75 Year
  Sex: Male

DRUGS (4)
  1. FLOMAX [Suspect]
     Indication: BENIGN PROSTATIC HYPERPLASIA
     Route: 048
     Dates: start: 20060101
  2. TENORMIN [Concomitant]
     Indication: BLOOD PRESSURE INCREASED
  3. MAXZIDE [Concomitant]
  4. K-DUR 10 [Concomitant]
     Indication: SUPPLEMENTATION THERAPY

REACTIONS (1)
  - EJACULATION FAILURE [None]
